FAERS Safety Report 9646769 (Version 2)
Quarter: 2013Q4

REPORT INFORMATION
  Report Type: Spontaneous
  Country: US (occurrence: US)
  Receive Date: 20131027
  Receipt Date: 20131027
  Transmission Date: 20140711
  Serious: No
  Sender: FDA-Public Use
  Company Number: US-PURDUE-USA-2013-0100180

PATIENT
  Sex: Female
  Weight: 73.02 kg

DRUGS (2)
  1. OXYCODONE HCL IMMEDIATE RELEASE (91-490) [Suspect]
     Indication: BACK PAIN
     Dosage: 5 MG, BID
     Route: 048
     Dates: start: 20101213
  2. OXYCODONE HCL IMMEDIATE RELEASE (91-490) [Suspect]
     Dosage: 5 MG, Q6H PRN
     Dates: end: 20110314

REACTIONS (1)
  - Abnormal loss of weight [Recovered/Resolved]
